FAERS Safety Report 6038792-0 (Version None)
Quarter: 2009Q1

REPORT INFORMATION
  Report Type: 
  Country: None (occurrence: None)
  Receive Date: 20090115
  Receipt Date: 20080625
  Transmission Date: 20090719
  Serious: No
  Sender: FDA-Public Use
  Company Number: US-ABBOTT-08P-163-0459369-00

PATIENT
  Sex: Male

DRUGS (2)
  1. ADVICOR [Suspect]
     Indication: DRUG USE FOR UNKNOWN INDICATION
  2. SIMCOR [Suspect]
     Indication: DRUG USE FOR UNKNOWN INDICATION

REACTIONS (1)
  - DYSPHAGIA [None]
